FAERS Safety Report 8927159 (Version 1)
Quarter: 2012Q4

REPORT INFORMATION
  Report Type: 
  Country: DE (occurrence: DE)
  Receive Date: 20121127
  Receipt Date: 20121127
  Transmission Date: 20130627
  Serious: Yes (Other)
  Sender: FDA-Public Use
  Company Number: DE-EISAI INC-E2080-00567-SPO-DE

PATIENT
  Age: 2 Year
  Sex: Female
  Weight: 14 kg

DRUGS (4)
  1. INOVELON [Suspect]
     Indication: EPILEPSY
     Dosage: 200 mg daily
     Route: 048
     Dates: start: 20120827, end: 20120909
  2. INOVELON [Suspect]
     Dosage: 100 mg daily
     Route: 048
     Dates: start: 20120910, end: 20120917
  3. STIRIPENTOL [Concomitant]
  4. CLOBAZAM [Concomitant]

REACTIONS (1)
  - Tachycardia [Recovered/Resolved]
